FAERS Safety Report 5809733-3 (Version None)
Quarter: 2008Q3

REPORT INFORMATION
  Report Type: 
  Country: None (occurrence: None)
  Receive Date: 20080714
  Receipt Date: 20080714
  Transmission Date: 20090109
  Serious: No
  Sender: FDA-Public Use
  Company Number: None

PATIENT
  Age: 12 Year
  Sex: Female
  Weight: 49.8957 kg

DRUGS (1)
  1. VYVANSE [Suspect]
     Dosage: 1 TABLET ONCE A DAY PO
     Route: 048
     Dates: start: 20080214

REACTIONS (5)
  - CRYING [None]
  - DEPRESSION [None]
  - EMOTIONAL DISTRESS [None]
  - PARANOIA [None]
  - PERSONALITY CHANGE [None]
